FAERS Safety Report 8963820 (Version 2)
Quarter: 2013Q1

REPORT INFORMATION
  Report Type: Spontaneous
  Country: US (occurrence: US)
  Receive Date: 20121214
  Receipt Date: 20130219
  Transmission Date: 20140127
  Serious: Yes (Other)
  Sender: FDA-Public Use
  Company Number: PHEH2012US024105

PATIENT
  Age: 60 None
  Sex: Male
  Weight: 85.26 kg

DRUGS (20)
  1. GILENYA [Suspect]
     Indication: MULTIPLE SCLEROSIS
     Dosage: 0.5 MG, QD
     Route: 048
     Dates: start: 20121204, end: 20121205
  2. GILENYA [Suspect]
     Dosage: 0.5 MG, QD
     Route: 048
  3. GILENYA [Suspect]
     Dosage: 0.5 MG, QD
     Route: 048
     Dates: start: 201212
  4. RAPAFLO [Concomitant]
     Dosage: UNK UKN, UNK
  5. CYMBALTA [Concomitant]
     Dosage: UNK UKN, UNK
  6. LISINOPRIL [Concomitant]
     Dosage: UNK UKN, UNK
  7. HYDROCHLOROTHIAZIDE [Concomitant]
     Dosage: UNK UKN, UNK
  8. MOBIC [Concomitant]
     Dosage: UNK UKN, UNK
  9. LIPASE [Concomitant]
     Dosage: UNK UKN, UNK
  10. VALIUM [Concomitant]
     Dosage: UNK UKN, UNK
  11. OXYCODONE [Concomitant]
     Dosage: UNK UKN, UNK
  12. LIDODERM [Concomitant]
     Dosage: UNK UKN, UNK
  13. MAGNESIUM [Concomitant]
     Dosage: UNK UKN, UNK
  14. VITAMIN B [Concomitant]
     Dosage: UNK UKN, UNK
  15. VITAMIN D3 [Concomitant]
     Dosage: UNK UKN, UNK
  16. VITAMIN B12 [Concomitant]
     Dosage: UNK UKN, UNK
  17. PAXIL [Concomitant]
     Dosage: UNK UKN, UNK
  18. LUNESTA [Concomitant]
     Dosage: UNK UKN, UNK
  19. VIAGRA [Concomitant]
     Dosage: UNK UKN, UNK
  20. PANTOPRAZOLE SODIUM [Concomitant]
     Dosage: UNK UKN, UNK

REACTIONS (8)
  - Prostate cancer [Unknown]
  - Agitation [Not Recovered/Not Resolved]
  - Head discomfort [Not Recovered/Not Resolved]
  - Groin pain [Not Recovered/Not Resolved]
  - Electrocardiogram abnormal [Unknown]
  - Heart rate decreased [Unknown]
  - Dyspnoea [Not Recovered/Not Resolved]
  - Asthenia [Not Recovered/Not Resolved]
